FAERS Safety Report 9738539 (Version 2)
Quarter: 2014Q1

REPORT INFORMATION
  Report Type: Spontaneous
  Country: AR (occurrence: AR)
  Receive Date: 20131209
  Receipt Date: 20140206
  Transmission Date: 20141002
  Serious: Yes (Other)
  Sender: FDA-Public Use
  Company Number: AR-AMGEN-ARGSP2013085532

PATIENT
  Age: 77 Year
  Sex: Female

DRUGS (1)
  1. ENBREL [Suspect]
     Indication: RHEUMATOID ARTHRITIS
     Dosage: 50 MG, WEEKLY
     Route: 058
     Dates: start: 20090211

REACTIONS (10)
  - Fractured coccyx [Not Recovered/Not Resolved]
  - Fall [Recovered/Resolved]
  - Mobility decreased [Unknown]
  - Periorbital contusion [Unknown]
  - Blood pressure decreased [Recovered/Resolved]
  - Confusional state [Recovered/Resolved]
  - Loss of consciousness [Recovered/Resolved]
  - Head injury [Recovered/Resolved]
  - Face injury [Recovered/Resolved]
  - Facial pain [Recovered/Resolved]
